FAERS Safety Report 15419112 (Version 2)
Quarter: 2018Q3

REPORT INFORMATION
  Report Type: Report from Study
  Country: US (occurrence: US)
  Receive Date: 20180924
  Receipt Date: 20180927
  Transmission Date: 20181010
  Serious: No
  Sender: FDA-Public Use
  Company Number: US-ALEXION PHARMACEUTICALS INC.-A201812339

PATIENT
  Sex: Female

DRUGS (1)
  1. SOLIRIS [Suspect]
     Active Substance: ECULIZUMAB
     Indication: PRODUCT USED FOR UNKNOWN INDICATION
     Dosage: UNK
     Route: 065

REACTIONS (7)
  - Alopecia [Unknown]
  - Cough [Unknown]
  - Pyrexia [Unknown]
  - Eyelid ptosis [Not Recovered/Not Resolved]
  - Sputum discoloured [Unknown]
  - Pain [Unknown]
  - Haemoptysis [Unknown]
